FAERS Safety Report 7593089-2 (Version None)
Quarter: 2011Q3

REPORT INFORMATION
  Report Type: 
  Country: None (occurrence: None)
  Receive Date: 20110706
  Receipt Date: 20110620
  Transmission Date: 20111222
  Serious: No
  Sender: FDA-Public Use
  Company Number: US-B.I. PHARMACEUTICALS,INC./RIDGEFIELD-2011-BP-15892BP

PATIENT
  Sex: Male

DRUGS (3)
  1. ALBUTEROL SULFATE AUTOHALER [Concomitant]
     Indication: CHRONIC OBSTRUCTIVE PULMONARY DISEASE
  2. ASPIRIN [Concomitant]
     Indication: PROPHYLAXIS
     Dosage: 81 MG
  3. SPIRIVA [Suspect]
     Indication: CHRONIC OBSTRUCTIVE PULMONARY DISEASE
     Dosage: 18 MCG
     Route: 055
     Dates: start: 20110320, end: 20110606

REACTIONS (2)
  - INCREASED UPPER AIRWAY SECRETION [None]
  - DYSPHONIA [None]
